FAERS Safety Report 24404981 (Version 1)
Quarter: 2024Q4

REPORT INFORMATION
  Report Type: Spontaneous
  Country: CN (occurrence: CN)
  Receive Date: 20241007
  Receipt Date: 20241007
  Transmission Date: 20250114
  Serious: No
  Sender: ROCHE
  Company Number: CN-ROCHE-3552091

PATIENT
  Age: 47 Year
  Sex: Female
  Weight: 60.0 kg

DRUGS (1)
  1. GAZYVA [Suspect]
     Active Substance: OBINUTUZUMAB
     Indication: Non-Hodgkin^s lymphoma
     Route: 041
     Dates: start: 20240320, end: 20240320

REACTIONS (1)
  - Feeling cold [Recovering/Resolving]

NARRATIVE: CASE EVENT DATE: 20240320
